FAERS Safety Report 9991702 (Version 1)
Quarter: 2014Q1

REPORT INFORMATION
  Report Type: Spontaneous
  Country: FR (occurrence: FR)
  Receive Date: 20140310
  Receipt Date: 20140310
  Transmission Date: 20141002
  Serious: Yes (Other)
  Sender: FDA-Public Use
  Company Number: FR-PFIZER INC-2014061713

PATIENT
  Sex: Female

DRUGS (2)
  1. XALKORI [Suspect]
     Dosage: 250 MG, 2X/DAY
  2. XALKORI [Suspect]
     Dosage: 250 MG, 1X/DAY

REACTIONS (1)
  - Loss of consciousness [Unknown]
